FAERS Safety Report 9889016 (Version 1)
Quarter: 2014Q1

REPORT INFORMATION
  Report Type: Spontaneous
  Country: US (occurrence: US)
  Receive Date: 20140211
  Receipt Date: 20140211
  Transmission Date: 20141002
  Serious: Yes (Hospitalization)
  Sender: FDA-Public Use
  Company Number: US-GILEAD-2014-0094138

PATIENT
  Age: 68 Year
  Sex: Female

DRUGS (10)
  1. LETAIRIS [Suspect]
     Indication: PULMONARY HYPERTENSION
     Dosage: 5 MG, QD
     Route: 048
     Dates: start: 20131129
  2. LETAIRIS [Suspect]
     Dosage: 10 MG, QD
     Route: 048
     Dates: start: 201307
  3. LETAIRIS [Suspect]
     Dosage: 5 MG, QD
     Route: 048
     Dates: start: 201306, end: 201401
  4. SILDENAFIL [Concomitant]
  5. FUROSEMIDE [Concomitant]
  6. ATENOLOL [Concomitant]
  7. METFORMIN [Concomitant]
  8. LOVASTATIN [Concomitant]
  9. NORTRIPTYLINE [Concomitant]
  10. APAP/CODEINE [Concomitant]

REACTIONS (3)
  - Generalised oedema [Unknown]
  - Anaemia [Unknown]
  - Dyspnoea exertional [Unknown]
